FAERS Safety Report 23296916 (Version 1)
Quarter: 2023Q4

REPORT INFORMATION
  Report Type: Spontaneous
  Country: US (occurrence: US)
  Receive Date: 20231214
  Receipt Date: 20231214
  Transmission Date: 20240110
  Serious: No
  Sender: FDA-Public Use
  Company Number: US-SA-SAC20231207001119

PATIENT
  Age: 48 Year
  Sex: Female

DRUGS (9)
  1. DUPIXENT [Suspect]
     Active Substance: DUPILUMAB
     Indication: Asthma
     Dosage: 200MG, QOW
     Route: 058
     Dates: start: 20230214
  2. MUCINEX [Concomitant]
     Active Substance: GUAIFENESIN
  3. VAGIFEM [Concomitant]
     Active Substance: ESTRADIOL
  4. SINGULAIR [Concomitant]
     Active Substance: MONTELUKAST SODIUM
  5. ADVAIR HFA [Concomitant]
     Active Substance: FLUTICASONE PROPIONATE\SALMETEROL XINAFOATE
  6. ALBUTEROL [Concomitant]
     Active Substance: ALBUTEROL
  7. METHOCARBAMOL [Concomitant]
     Active Substance: METHOCARBAMOL
  8. OXYCONTIN [Concomitant]
     Active Substance: OXYCODONE HYDROCHLORIDE
  9. OMEPRAZOLE [Concomitant]
     Active Substance: OMEPRAZOLE

REACTIONS (1)
  - Asthma [Unknown]
